FAERS Safety Report 9319578 (Version 1)
Quarter: 2012Q4

REPORT INFORMATION
  Report Type: Spontaneous
  Country: US (occurrence: None)
  Receive Date: 20121217
  Receipt Date: 20121217
  Transmission Date: 20130627
  Serious: Yes (Other)
  Sender: FDA-Public Use
  Company Number: US-1194347

PATIENT
  Age: 70 Year
  Sex: Female
  Weight: 69.4 kg

DRUGS (11)
  1. LATANOPROST [Suspect]
     Indication: INTRAOCULAR PRESSURE INCREASED
     Dates: start: 2012, end: 2012
  2. LATANOPROST [Suspect]
     Indication: GLAUCOMA
     Dates: start: 2012, end: 2012
  3. POTASSIUM [Concomitant]
  4. CALCIUM [Concomitant]
  5. MAGNESIUM [Concomitant]
  6. VITAMIN C [Concomitant]
  7. FLAXSEED OIL [Concomitant]
  8. VITAMIN D [Concomitant]
  9. PREDNISONE [Concomitant]
  10. KETOROLAC [Concomitant]
  11. TMOLOL [Concomitant]

REACTIONS (3)
  - Angioedema [None]
  - Swollen tongue [None]
  - Face oedema [None]
